FAERS Safety Report 4870915-9 (Version None)
Quarter: 2005Q4

REPORT INFORMATION
  Report Type: 
  Country: None (occurrence: None)
  Receive Date: 20051228
  Receipt Date: 20051213
  Transmission Date: 20060501
  Serious: Yes (Hospitalization)
  Sender: FDA-Public Use
  Company Number: JP200512002382

PATIENT
  Sex: Female

DRUGS (2)
  1. GEMZAR [Suspect]
     Indication: CERVIX CARCINOMA
     Dosage: 1000 MG/M2, OTHER, INTRAVENOUS
     Route: 042
     Dates: start: 20051101, end: 20051201
  2. PARAPLATIN [Concomitant]

REACTIONS (4)
  - CONDITION AGGRAVATED [None]
  - METASTASES TO LUNG [None]
  - PERICARDIAL EFFUSION [None]
  - PNEUMONITIS [None]
